FAERS Safety Report 20569026 (Version 2)
Quarter: 2022Q1

REPORT INFORMATION
  Report Type: Spontaneous
  Country: US (occurrence: US)
  Receive Date: 20220308
  Receipt Date: 20220317
  Transmission Date: 20220423
  Serious: No
  Sender: FDA-Public Use
  Company Number: US-Blueprint Medicines Corporation-SP-US-2022-000597

PATIENT
  Sex: Male
  Weight: 85.7 kg

DRUGS (1)
  1. AYVAKIT [Suspect]
     Active Substance: AVAPRITINIB
     Indication: Gastrointestinal stromal tumour
     Route: 048
     Dates: start: 20220215

REACTIONS (4)
  - Balance disorder [Unknown]
  - Rhinorrhoea [Unknown]
  - Decreased appetite [Unknown]
  - Paraesthesia [Unknown]
